FAERS Safety Report 19122574 (Version 1)
Quarter: 2021Q2

REPORT INFORMATION
  Report Type: Spontaneous
  Country: US (occurrence: US)
  Receive Date: 20210412
  Receipt Date: 20210412
  Transmission Date: 20210717
  Serious: Yes (Other)
  Sender: FDA-Public Use
  Company Number: US-VELOXIS PHARMACEUTICALS-2021VELUS-000264

PATIENT
  Sex: Female

DRUGS (2)
  1. ENVARSUS XR [Suspect]
     Active Substance: TACROLIMUS
     Dosage: 9 MILLIGRAM, QD (STRENGTH 4 MG)
     Route: 065
     Dates: start: 202009
  2. ENVARSUS XR [Suspect]
     Active Substance: TACROLIMUS
     Indication: PRODUCT USED FOR UNKNOWN INDICATION
     Dosage: 9 MILLIGRAM, QD (STRENGTH 1 MG)
     Route: 065
     Dates: start: 202009

REACTIONS (4)
  - Dyspnoea [Unknown]
  - Tremor [Unknown]
  - Neuropathy peripheral [Unknown]
  - Abdominal distension [Unknown]
